FAERS Safety Report 25685295 (Version 1)
Quarter: 2025Q3

REPORT INFORMATION
  Report Type: Report from Study
  Country: IN (occurrence: IN)
  Receive Date: 20250815
  Receipt Date: 20250815
  Transmission Date: 20251021
  Serious: Yes (Other)
  Sender: ROCHE
  Company Number: IN-ROCHE-10000362800

PATIENT
  Age: 56 Year
  Sex: Male

DRUGS (7)
  1. CELLCEPT [Suspect]
     Active Substance: MYCOPHENOLATE MOFETIL
     Indication: Liver transplant
     Route: 048
     Dates: start: 20200804
  2. PREDNISOLONE [Concomitant]
     Active Substance: PREDNISOLONE
     Dosage: 5 DAY
  3. TACROLIMUS [Concomitant]
     Active Substance: TACROLIMUS
  4. URSODIOL [Concomitant]
     Active Substance: URSODIOL
  5. CERTICAN [Concomitant]
     Active Substance: EVEROLIMUS
  6. Shelcal-M [Concomitant]
  7. CEFIXIME [Concomitant]
     Active Substance: CEFIXIME

REACTIONS (3)
  - Liver transplant rejection [Unknown]
  - Anastomotic stenosis [Unknown]
  - Liver function test abnormal [Unknown]

NARRATIVE: CASE EVENT DATE: 20221001
